FAERS Safety Report 5205692-5 (Version None)
Quarter: 2007Q1

REPORT INFORMATION
  Report Type: 
  Country: None (occurrence: None)
  Receive Date: 20070111
  Receipt Date: 20070102
  Transmission Date: 20070707
  Serious: Yes (Other)
  Sender: FDA-Public Use
  Company Number: US-BAYER-200710027BCC

PATIENT
  Age: 44 Year
  Sex: Female

DRUGS (1)
  1. ALKA-SELTZER [Suspect]
     Indication: STOMACH DISCOMFORT
     Route: 048
     Dates: start: 19820101

REACTIONS (2)
  - DYSPNOEA [None]
  - THROAT TIGHTNESS [None]
